FAERS Safety Report 16474361 (Version 6)
Quarter: 2020Q3

REPORT INFORMATION
  Report Type: Spontaneous
  Country: US (occurrence: US)
  Receive Date: 20190625
  Receipt Date: 20200913
  Transmission Date: 20201102
  Serious: Yes (Hospitalization, Other)
  Sender: FDA-Public Use
  Company Number: US-LEXICON PHARMACEUTICALS, INC-19-1606-00673

PATIENT
  Age: 71 Year
  Sex: Female

DRUGS (7)
  1. TELOTRISTAT ETHYL [Suspect]
     Active Substance: TELOTRISTAT ETHYL
     Indication: CARCINOID TUMOUR OF THE DUODENUM
     Dosage: ALTERNATING DOSES.
     Route: 048
     Dates: start: 20190605
  2. POTASSIUM [Concomitant]
     Active Substance: POTASSIUM
  3. TELOTRISTAT ETHYL [Suspect]
     Active Substance: TELOTRISTAT ETHYL
     Dosage: ALTERNATING DOSES.
     Route: 048
  4. SANDOSTATIN [Concomitant]
     Active Substance: OCTREOTIDE ACETATE
  5. SANDOSTATIN [Concomitant]
     Active Substance: OCTREOTIDE ACETATE
  6. TELOTRISTAT ETHYL [Suspect]
     Active Substance: TELOTRISTAT ETHYL
     Route: 048
  7. SOMATULINE [Concomitant]
     Active Substance: LANREOTIDE ACETATE
     Dosage: UNKNOWN

REACTIONS (11)
  - Blood pressure abnormal [Unknown]
  - Cardiac failure congestive [Not Recovered/Not Resolved]
  - Pericardial effusion [Unknown]
  - Blood gastrin increased [Not Recovered/Not Resolved]
  - Oesophageal dilation procedure [Unknown]
  - Choking [Unknown]
  - Gout [Unknown]
  - Nausea [Not Recovered/Not Resolved]
  - Pain [Unknown]
  - Frequent bowel movements [Not Recovered/Not Resolved]
  - Abdominal pain [Not Recovered/Not Resolved]
